FAERS Safety Report 5009580-9 (Version None)
Quarter: 2006Q2

REPORT INFORMATION
  Report Type: 
  Country: None (occurrence: None)
  Receive Date: 20060524
  Receipt Date: 20060515
  Transmission Date: 20061013
  Serious: Yes (Hospitalization)
  Sender: FDA-Public Use
  Company Number: PHBS2006GT07234

PATIENT
  Age: 78 Year
  Sex: Female

DRUGS (3)
  1. ZELMAC [Suspect]
     Indication: CONSTIPATION
     Dosage: 6 MG, BID
     Route: 048
     Dates: start: 20020614, end: 20030107
  2. INHIBACE [Concomitant]
     Dosage: 5 MG/DAY
     Dates: start: 20030101
  3. LOZEC [Concomitant]
     Dates: start: 20030101

REACTIONS (3)
  - DIVERTICULUM [None]
  - HAEMORRHOIDS [None]
  - RECTAL HAEMORRHAGE [None]
